FAERS Safety Report 4314828-X (Version None)
Quarter: 2004Q1

REPORT INFORMATION
  Report Type: 
  Country: None (occurrence: None)
  Receive Date: 20040305
  Receipt Date: 20040224
  Transmission Date: 20041129
  Serious: Yes (Hospitalization, Other)
  Sender: FDA-Public Use
  Company Number: HQWYE276724FEB04

PATIENT
  Age: 57 Year
  Sex: Female

DRUGS (11)
  1. ADVIL [Suspect]
     Dosage: TOPICAL
     Route: 061
     Dates: start: 20040113, end: 20040120
  2. TETRAZEPAM (TETRAZEPAM,) [Suspect]
     Dosage: ^1/D^
     Dates: start: 20040113, end: 20040120
  3. MOVICOL (MACROGOL/POTASSIUM CHLORIDE/SODIUM BICARBONATE/SODIUM CHLORID [Concomitant]
  4. TRAMADOL HCL [Concomitant]
  5. PRINZIDE [Concomitant]
  6. LAMISIL (TERBINAFINE HYDROCHLORIDE) [Concomitant]
  7. ART 50 (DIACEREIN) [Concomitant]
  8. PARIET (RABEPRAZOLE) [Concomitant]
  9. CLONAZEPAM [Concomitant]
  10. MORPHINE SULFATE [Concomitant]
  11. PREDNISONE [Concomitant]

REACTIONS (5)
  - APPLICATION SITE REACTION [None]
  - HYPERSENSITIVITY [None]
  - PRURITUS [None]
  - RASH ERYTHEMATOUS [None]
  - RASH MACULO-PAPULAR [None]
